FAERS Safety Report 7034876-9 (Version None)
Quarter: 2010Q4

REPORT INFORMATION
  Report Type: 
  Country: None (occurrence: None)
  Receive Date: 20101008
  Receipt Date: 20100927
  Transmission Date: 20110411
  Serious: Yes (Other)
  Sender: FDA-Public Use
  Company Number: US-PFIZER INC-2010122228

PATIENT
  Sex: Male
  Weight: 90.703 kg

DRUGS (6)
  1. SILDENAFIL CITRATE [Suspect]
     Dosage: 20 MG, UNK
     Route: 048
     Dates: start: 20100701, end: 20100801
  2. LABETALOL HYDROCHLORIDE [Suspect]
     Indication: HYPERTENSION
     Dosage: 200 MG, 2X/DAY
     Route: 048
  3. EPLERENONE [Concomitant]
     Indication: HYPERTENSION
     Dosage: UNK
  4. LISINOPRIL [Concomitant]
     Dosage: UNK
  5. HYDROCHLOROTHIAZIDE [Concomitant]
     Indication: HYPERTENSION
     Dosage: UNK
  6. NIFEDIPINE [Concomitant]
     Indication: HYPERTENSION
     Dosage: UNK

REACTIONS (2)
  - DRUG INTERACTION [None]
  - HYPOTENSION [None]
